FAERS Safety Report 6380257-0 (Version None)
Quarter: 2009Q3

REPORT INFORMATION
  Report Type: 
  Country: None (occurrence: None)
  Receive Date: 20090929
  Receipt Date: 20090916
  Transmission Date: 20100115
  Serious: Yes (Hospitalization)
  Sender: FDA-Public Use
  Company Number: US-ROCHE-607250

PATIENT
  Sex: Female
  Weight: 68.5 kg

DRUGS (16)
  1. PEG-INTERFERON ALFA 2A (RO 25-8310) [Suspect]
     Dosage: FORM PRE-FILLED SYRINGE, LAST DOSE PRIOR TO SAE: 01 DECEMBER 2008
     Route: 058
     Dates: start: 20080728
  2. RIBAVIRIN [Suspect]
     Dosage: LAST DOSE PRIOR TO SAE: 07 DECEMBER 2008
     Route: 048
     Dates: start: 20080728
  3. RIBAVIRIN [Suspect]
     Dosage: DOSE REDUCED, TAKEN FOR TWO WEEKS
     Route: 048
  4. RIBAVIRIN [Suspect]
     Route: 048
  5. IMITREX [Concomitant]
  6. SPIRIVA [Concomitant]
     Dosage: FORM: PUFF
  7. ADVAIR DISKUS 100/50 [Concomitant]
     Dosage: FORM: PUFF
  8. SINGULAIR [Concomitant]
  9. PRILOSEC [Concomitant]
  10. TOPAMAX [Concomitant]
  11. PROVENTIL-HFA [Concomitant]
     Dosage: TOTAL DAILY DOSE: PRN
  12. LORTAB [Concomitant]
     Dosage: TOTAL DAILY DOSE: PRN
  13. TIZANIDINE HCL [Concomitant]
     Dosage: DRUG: TIZANADINE
  14. VALIUM [Concomitant]
  15. LEXAPRO [Concomitant]
  16. AMBIEN [Concomitant]

REACTIONS (1)
  - CHRONIC OBSTRUCTIVE PULMONARY DISEASE [None]
